FAERS Safety Report 25707995 (Version 1)
Quarter: 2025Q3

REPORT INFORMATION
  Report Type: Spontaneous
  Country: JP (occurrence: JP)
  Receive Date: 20250820
  Receipt Date: 20250820
  Transmission Date: 20251020
  Serious: Yes (Other)
  Sender: GLAXOSMITHKLINE
  Company Number: JP-GSK-JP2025JPN105740

PATIENT

DRUGS (1)
  1. DAPRODUSTAT [Suspect]
     Active Substance: DAPRODUSTAT

REACTIONS (2)
  - Pneumonia [Unknown]
  - Hypophagia [Unknown]
